FAERS Safety Report 8312139-9 (Version None)
Quarter: 2012Q1

REPORT INFORMATION
  Report Type: 
  Country: None (occurrence: None)
  Receive Date: 20120315
  Receipt Date: 20110616
  Transmission Date: 20120608
  Serious: No
  Sender: FDA-Public Use
  Company Number: PHHY2011US44861

PATIENT
  Sex: Male

DRUGS (1)
  1. GILENYA [Suspect]
     Indication: MULTIPLE SCLEROSIS
     Dosage: 0.5 MG, DAILY, ORAL
     Route: 048
     Dates: start: 20110511, end: 20110615

REACTIONS (9)
  - HEADACHE [None]
  - CARDIAC DISORDER [None]
  - FLUSHING [None]
  - DIARRHOEA [None]
  - PERIPHERAL COLDNESS [None]
  - FATIGUE [None]
  - EYE PAIN [None]
  - DIZZINESS [None]
  - PRURITUS [None]
